FAERS Safety Report 17548469 (Version 3)
Quarter: 2020Q4

REPORT INFORMATION
  Report Type: Spontaneous
  Country: US (occurrence: US)
  Receive Date: 20200317
  Receipt Date: 20201103
  Transmission Date: 20210113
  Serious: Yes (Other)
  Sender: FDA-Public Use
  Company Number: US-ASTRAZENECA-2020SE37340

PATIENT
  Age: 23672 Day
  Sex: Female
  Weight: 68 kg

DRUGS (95)
  1. PRILOSEC [Suspect]
     Active Substance: OMEPRAZOLE MAGNESIUM
     Indication: GASTROOESOPHAGEAL REFLUX DISEASE
     Route: 048
     Dates: start: 2001, end: 2017
  2. CRESTOR [Concomitant]
     Active Substance: ROSUVASTATIN CALCIUM
     Indication: BLOOD CHOLESTEROL ABNORMAL
     Dates: start: 201310, end: 201510
  3. PEPCID [Concomitant]
     Active Substance: FAMOTIDINE
     Dates: start: 201801, end: 201808
  4. PEPCID [Concomitant]
     Active Substance: FAMOTIDINE
     Dates: start: 201907
  5. TUMS [Concomitant]
     Active Substance: CALCIUM CARBONATE
     Dates: start: 201801, end: 201808
  6. TUMS [Concomitant]
     Active Substance: CALCIUM CARBONATE
     Dosage: 2-3 A DAY
  7. EPIPEN [Concomitant]
     Active Substance: EPINEPHRINE
     Dates: start: 201801, end: 201808
  8. EPIPEN [Concomitant]
     Active Substance: EPINEPHRINE
     Dates: start: 201907
  9. LOSARTAN. [Concomitant]
     Active Substance: LOSARTAN
     Dates: start: 201907
  10. ZOCOR [Concomitant]
     Active Substance: SIMVASTATIN
     Dates: start: 201907
  11. ONDANSETRON [Concomitant]
     Active Substance: ONDANSETRON
     Dates: start: 201801, end: 201808
  12. OXYCODONE [Concomitant]
     Active Substance: OXYCODONE
     Dates: start: 201808, end: 202003
  13. MORPHINE [Concomitant]
     Active Substance: MORPHINE
     Dates: start: 201801, end: 201808
  14. TIZANIDINE. [Concomitant]
     Active Substance: TIZANIDINE
     Dates: start: 201907
  15. TIZANIDINE. [Concomitant]
     Active Substance: TIZANIDINE
     Dosage: 2-3 A DAY
  16. PREVACID [Suspect]
     Active Substance: LANSOPRAZOLE
     Indication: GASTROOESOPHAGEAL REFLUX DISEASE
     Dosage: SOLUTE ABS AND TABLET
     Route: 065
     Dates: start: 1995, end: 2010
  17. PREVACID [Suspect]
     Active Substance: LANSOPRAZOLE
     Indication: GASTROOESOPHAGEAL REFLUX DISEASE
     Dosage: SOLUTE ABS AND TABLET (GENERIC)
     Route: 065
     Dates: start: 2010, end: 2017
  18. TRAMADOL. [Concomitant]
     Active Substance: TRAMADOL
     Indication: PAIN
     Dates: start: 201508, end: 201510
  19. VITAMIN D [Concomitant]
     Active Substance: VITAMIN D NOS
     Indication: VITAMIN D DEFICIENCY
     Dates: start: 2013
  20. ROLAIDS [Concomitant]
     Active Substance: CALCIUM CARBONATE\MAGNESIUM HYDROXIDE
     Dosage: 2-3 A DAY
  21. LOSARTAN. [Concomitant]
     Active Substance: LOSARTAN
     Dates: start: 201801, end: 201808
  22. CELEBREX [Concomitant]
     Active Substance: CELECOXIB
     Dates: start: 201907
  23. CODEINE [Concomitant]
     Active Substance: CODEINE
     Dates: start: 201801, end: 201808
  24. CODEINE [Concomitant]
     Active Substance: CODEINE
     Dates: start: 201907
  25. MORPHINE [Concomitant]
     Active Substance: MORPHINE
     Dates: start: 201907
  26. CLONAZEPAM. [Concomitant]
     Active Substance: CLONAZEPAM
     Dosage: 2-3 A DAY
  27. TIZANIDINE. [Concomitant]
     Active Substance: TIZANIDINE
     Dates: start: 201801, end: 201808
  28. PEPCID [Concomitant]
     Active Substance: FAMOTIDINE
     Dates: start: 201808, end: 202003
  29. ALKA-SELTZER [Concomitant]
     Active Substance: ANHYDROUS CITRIC ACID\ASPIRIN\SODIUM BICARBONATE
     Dates: start: 201808, end: 202003
  30. ALUPENT [Concomitant]
     Active Substance: METAPROTERENOL SULFATE
     Dates: start: 201808, end: 202003
  31. ALUPENT [Concomitant]
     Active Substance: METAPROTERENOL SULFATE
     Dates: start: 201907
  32. ZOCOR [Concomitant]
     Active Substance: SIMVASTATIN
     Dates: start: 201808, end: 202003
  33. ONDANSETRON [Concomitant]
     Active Substance: ONDANSETRON
     Dosage: 2-3 A DAY
  34. OXYCODONE [Concomitant]
     Active Substance: OXYCODONE
     Dosage: 2-3 A DAY
  35. VOLTAREN [Concomitant]
     Active Substance: DICLOFENAC SODIUM
     Dates: start: 201801, end: 201808
  36. ENOXAPARIN [Concomitant]
     Active Substance: ENOXAPARIN
     Dates: start: 201808, end: 202003
  37. ENOXAPARIN [Concomitant]
     Active Substance: ENOXAPARIN
     Dates: start: 201907
  38. MORPHINE [Concomitant]
     Active Substance: MORPHINE
     Dates: start: 201808, end: 202003
  39. PRILOSEC [Suspect]
     Active Substance: OMEPRAZOLE MAGNESIUM
     Indication: GASTROOESOPHAGEAL REFLUX DISEASE
     Route: 048
     Dates: start: 2001
  40. PREVACID [Suspect]
     Active Substance: LANSOPRAZOLE
     Indication: GASTROOESOPHAGEAL REFLUX DISEASE
     Route: 065
     Dates: start: 2001
  41. ROLAIDS [Concomitant]
     Active Substance: CALCIUM CARBONATE\MAGNESIUM HYDROXIDE
     Dates: start: 201801, end: 201808
  42. GABAPENTIN. [Concomitant]
     Active Substance: GABAPENTIN
     Dosage: 2-3 A DAY
  43. CODEINE [Concomitant]
     Active Substance: CODEINE
     Dates: start: 201808, end: 202003
  44. OXYCODONE [Concomitant]
     Active Substance: OXYCODONE
     Dates: start: 201907
  45. VOLTAREN [Concomitant]
     Active Substance: DICLOFENAC SODIUM
     Dates: start: 201907
  46. CLONAZEPAM. [Concomitant]
     Active Substance: CLONAZEPAM
     Dates: start: 201801, end: 201808
  47. HYDROCHLOROTHIAZIDE. [Concomitant]
     Active Substance: HYDROCHLOROTHIAZIDE
     Indication: BLOOD PRESSURE ABNORMAL
     Dates: start: 201210, end: 201409
  48. ROSUVASTATIN. [Concomitant]
     Active Substance: ROSUVASTATIN
     Indication: BLOOD CHOLESTEROL ABNORMAL
     Dates: start: 201811, end: 201902
  49. ROLAIDS [Concomitant]
     Active Substance: CALCIUM CARBONATE\MAGNESIUM HYDROXIDE
     Dates: start: 201907
  50. ALKA-SELTZER [Concomitant]
     Active Substance: ANHYDROUS CITRIC ACID\ASPIRIN\SODIUM BICARBONATE
     Dates: start: 201907
  51. EPIPEN [Concomitant]
     Active Substance: EPINEPHRINE
     Dosage: 2-3 A DAY
  52. GABAPENTIN. [Concomitant]
     Active Substance: GABAPENTIN
     Dates: start: 201808, end: 202003
  53. ZOCOR [Concomitant]
     Active Substance: SIMVASTATIN
     Dosage: 2-3 A DAY
  54. ONDANSETRON [Concomitant]
     Active Substance: ONDANSETRON
     Dates: start: 201808, end: 202003
  55. VOLTAREN [Concomitant]
     Active Substance: DICLOFENAC SODIUM
     Dosage: 2-3 A DAY
  56. ENOXAPARIN [Concomitant]
     Active Substance: ENOXAPARIN
     Dosage: 2-3 A DAY
  57. CLONAZEPAM. [Concomitant]
     Active Substance: CLONAZEPAM
     Dates: start: 201808, end: 202003
  58. CLONAZEPAM. [Concomitant]
     Active Substance: CLONAZEPAM
     Dates: start: 201907
  59. TUMS [Concomitant]
     Active Substance: CALCIUM CARBONATE
     Dates: start: 201907
  60. ROLAIDS [Concomitant]
     Active Substance: CALCIUM CARBONATE\MAGNESIUM HYDROXIDE
     Dates: start: 201808, end: 202003
  61. EPIPEN [Concomitant]
     Active Substance: EPINEPHRINE
     Dates: start: 201808, end: 202003
  62. CELEBREX [Concomitant]
     Active Substance: CELECOXIB
     Dates: start: 201808, end: 202003
  63. CELEBREX [Concomitant]
     Active Substance: CELECOXIB
     Dates: start: 201801, end: 201808
  64. ZOCOR [Concomitant]
     Active Substance: SIMVASTATIN
     Dates: start: 201801, end: 201808
  65. TIZANIDINE. [Concomitant]
     Active Substance: TIZANIDINE
     Dates: start: 201808, end: 202003
  66. PANTOPRAZOLE [Suspect]
     Active Substance: PANTOPRAZOLE
     Indication: GASTROOESOPHAGEAL REFLUX DISEASE
     Dosage: GENERIC
     Route: 065
     Dates: start: 2017, end: 2019
  67. ANASTROZOLE. [Concomitant]
     Active Substance: ANASTROZOLE
     Indication: BREAST CANCER
     Dates: start: 201910
  68. LOSARTAN POTASSIUM. [Concomitant]
     Active Substance: LOSARTAN POTASSIUM
     Indication: BLOOD PRESSURE ABNORMAL
     Dates: start: 201411, end: 201510
  69. AZITHROMYCIN ANHYDROUS. [Concomitant]
     Active Substance: AZITHROMYCIN ANHYDROUS
     Indication: INFECTION
     Dates: start: 201404
  70. ZANTAC [Concomitant]
     Active Substance: RANITIDINE HYDROCHLORIDE
     Dates: start: 1980
  71. TUMS [Concomitant]
     Active Substance: CALCIUM CARBONATE
     Dates: start: 201808, end: 202003
  72. FLONASE [Concomitant]
     Active Substance: FLUTICASONE PROPIONATE
     Dates: start: 201801, end: 201808
  73. FLONASE [Concomitant]
     Active Substance: FLUTICASONE PROPIONATE
     Dates: start: 201907
  74. FLONASE [Concomitant]
     Active Substance: FLUTICASONE PROPIONATE
     Dosage: 2-3 A DAY
  75. LOSARTAN. [Concomitant]
     Active Substance: LOSARTAN
     Dates: start: 201808, end: 202003
  76. CELEBREX [Concomitant]
     Active Substance: CELECOXIB
     Dosage: 2-3 A DAY
  77. CODEINE [Concomitant]
     Active Substance: CODEINE
     Dosage: 2-3 A DAY
  78. OXYCODONE [Concomitant]
     Active Substance: OXYCODONE
     Dates: start: 201801, end: 201808
  79. ENOXAPARIN [Concomitant]
     Active Substance: ENOXAPARIN
     Dates: start: 201801, end: 201808
  80. MORPHINE [Concomitant]
     Active Substance: MORPHINE
     Dosage: 2-3 A DAY
  81. PRILOSEC [Suspect]
     Active Substance: OMEPRAZOLE MAGNESIUM
     Indication: GASTROOESOPHAGEAL REFLUX DISEASE
     Route: 048
     Dates: start: 2001
  82. PANTOPRAZOLE [Suspect]
     Active Substance: PANTOPRAZOLE
     Indication: GASTROOESOPHAGEAL REFLUX DISEASE
     Dosage: GENERIC
     Route: 065
     Dates: start: 2012
  83. FUROSEMIDE. [Concomitant]
     Active Substance: FUROSEMIDE
     Indication: SWELLING
     Dates: start: 201501, end: 201502
  84. ASPIRIN. [Concomitant]
     Active Substance: ASPIRIN
     Indication: CARDIAC DISORDER
     Dosage: 81.0MG UNKNOWN
     Dates: start: 2013
  85. STOOL SOFTENER (DOCUSATE) [Concomitant]
     Active Substance: DOCUSATE
     Indication: CONSTIPATION
     Dates: start: 2013
  86. ALKA-SELTZER [Concomitant]
     Active Substance: ANHYDROUS CITRIC ACID\ASPIRIN\SODIUM BICARBONATE
     Dates: start: 201801, end: 201808
  87. ALKA-SELTZER [Concomitant]
     Active Substance: ANHYDROUS CITRIC ACID\ASPIRIN\SODIUM BICARBONATE
     Dosage: 2-3 A DAY
  88. FLONASE [Concomitant]
     Active Substance: FLUTICASONE PROPIONATE
     Dates: start: 201808, end: 202003
  89. GABAPENTIN. [Concomitant]
     Active Substance: GABAPENTIN
     Dates: start: 201801, end: 201808
  90. GABAPENTIN. [Concomitant]
     Active Substance: GABAPENTIN
     Dates: start: 201907
  91. LOSARTAN. [Concomitant]
     Active Substance: LOSARTAN
     Dosage: 2-3 A DAY
  92. ALUPENT [Concomitant]
     Active Substance: METAPROTERENOL SULFATE
     Dates: start: 201801, end: 201808
  93. ALUPENT [Concomitant]
     Active Substance: METAPROTERENOL SULFATE
     Dosage: 2-3 A DAY
  94. ONDANSETRON [Concomitant]
     Active Substance: ONDANSETRON
     Dates: start: 201907
  95. VOLTAREN [Concomitant]
     Active Substance: DICLOFENAC SODIUM
     Dates: start: 201808, end: 202003

REACTIONS (3)
  - Renal failure [Unknown]
  - Chronic kidney disease [Not Recovered/Not Resolved]
  - Rebound acid hypersecretion [Unknown]

NARRATIVE: CASE EVENT DATE: 20130710
